FAERS Safety Report 6230280-1 (Version None)
Quarter: 2009Q2

REPORT INFORMATION
  Report Type: 
  Country: None (occurrence: None)
  Receive Date: 20090615
  Receipt Date: 20090529
  Transmission Date: 20091009
  Serious: Yes (Hospitalization)
  Sender: FDA-Public Use
  Company Number: DE-B.I. PHARMACEUTICALS,INC./RIDGEFIELD-2009-DE-04217BY

PATIENT
  Age: 70 Year
  Sex: Female

DRUGS (4)
  1. TELMISARTAN [Suspect]
     Route: 048
  2. RAMIPRIL [Suspect]
     Indication: HYPERTENSION
     Route: 065
     Dates: start: 20090401
  3. TRAMADOL HCL [Concomitant]
     Route: 065
  4. TRIMIPRAMINE MALEATE [Concomitant]
     Route: 065

REACTIONS (2)
  - HYPERTENSIVE CRISIS [None]
  - HYPONATRAEMIA [None]
